FAERS Safety Report 4288688-X (Version None)
Quarter: 2004Q1

REPORT INFORMATION
  Report Type: 
  Country: None (occurrence: None)
  Receive Date: 20040205
  Receipt Date: 20040126
  Transmission Date: 20041129
  Serious: Yes (Disabling)
  Sender: FDA-Public Use
  Company Number: UK064836

PATIENT
  Age: 52 Year
  Sex: Male

DRUGS (4)
  1. NEULASTA [Suspect]
     Indication: CHEMOTHERAPY
     Dosage: SC
     Route: 058
     Dates: start: 20040106
  2. BLEMOYCIN SULFATE [Concomitant]
  3. ETOPOSIDE [Concomitant]
  4. CISPLATIN [Concomitant]

REACTIONS (8)
  - AMPUTATION [None]
  - ARTERIAL THROMBOSIS LIMB [None]
  - DEHYDRATION [None]
  - DRUG INEFFECTIVE [None]
  - PERIPHERAL ISCHAEMIA [None]
  - PLATELET COUNT INCREASED [None]
  - RENAL FAILURE [None]
  - VOMITING [None]
